FAERS Safety Report 6772798-9 (Version None)
Quarter: 2010Q2

REPORT INFORMATION
  Report Type: 
  Country: None (occurrence: None)
  Receive Date: 20100616
  Receipt Date: 20100611
  Transmission Date: 20101027
  Serious: Yes (Life-Threatening, Other)
  Sender: FDA-Public Use
  Company Number: GXKR2010DE06441

PATIENT
  Sex: Male
  Weight: 52 kg

DRUGS (1)
  1. OMEP (NGX) [Suspect]
     Dosage: 20 MG, ONCE/SINGLE
     Route: 048

REACTIONS (7)
  - ABDOMINAL PAIN UPPER [None]
  - BACK PAIN [None]
  - DEAFNESS [None]
  - HEADACHE [None]
  - HYPOACUSIS [None]
  - NAUSEA [None]
  - VISION BLURRED [None]
